FAERS Safety Report 12232166 (Version 1)
Quarter: 2016Q2

REPORT INFORMATION
  Report Type: Spontaneous
  Country: JP (occurrence: JP)
  Receive Date: 20160401
  Receipt Date: 20160401
  Transmission Date: 20160815
  Serious: Yes (Other)
  Sender: FDA-Public Use
  Company Number: JP-GILEAD-2016-0205930

PATIENT
  Age: 68 Year
  Sex: Male

DRUGS (3)
  1. HEPSERA [Suspect]
     Active Substance: ADEFOVIR DIPIVOXIL
     Indication: HEPATITIS B
     Dosage: 10 MG, 1D
     Route: 048
  2. LAMIVUDINE. [Concomitant]
     Active Substance: LAMIVUDINE
     Indication: HEPATITIS B
     Dosage: 100 MG, 1D
     Route: 065
  3. HEPSERA [Suspect]
     Active Substance: ADEFOVIR DIPIVOXIL
     Dosage: 10 MG, QOD
     Route: 048

REACTIONS (8)
  - Fanconi syndrome acquired [Unknown]
  - Osteomalacia [Unknown]
  - Hypophosphataemia [Unknown]
  - Spinal compression fracture [Unknown]
  - Pain [Recovering/Resolving]
  - Back pain [Unknown]
  - Osteoporosis [Unknown]
  - Renal impairment [Unknown]
